FAERS Safety Report 6030516-6 (Version None)
Quarter: 2009Q1

REPORT INFORMATION
  Report Type: 
  Country: None (occurrence: None)
  Receive Date: 20090106
  Receipt Date: 20090106
  Transmission Date: 20090719
  Serious: Yes (Other)
  Sender: FDA-Public Use
  Company Number: None

PATIENT
  Sex: Female
  Weight: 72.5755 kg

DRUGS (1)
  1. CELEXA [Suspect]
     Indication: DEPRESSION
     Dosage: 20 MG 1 X/DAY PO
     Route: 048
     Dates: start: 20080715, end: 20081115

REACTIONS (5)
  - CHROMATOPSIA [None]
  - HALLUCINATION, VISUAL [None]
  - HYPEREXPLEXIA [None]
  - PHOTOPSIA [None]
  - VISUAL IMPAIRMENT [None]
